FAERS Safety Report 13007048 (Version 2)
Quarter: 2017Q2

REPORT INFORMATION
  Report Type: Spontaneous
  Country: US (occurrence: US)
  Receive Date: 20161207
  Receipt Date: 20170607
  Transmission Date: 20170830
  Serious: Yes (Death, Other)
  Sender: FDA-Public Use
  Company Number: US-CELGENEUS-USA-2016117732

PATIENT

DRUGS (3)
  1. DEXAMETHASONE. [Concomitant]
     Active Substance: DEXAMETHASONE
     Indication: PLASMA CELL MYELOMA
     Route: 065
  2. ISATUXIMAB [Concomitant]
     Active Substance: ISATUXIMAB
     Indication: PLASMA CELL MYELOMA
     Route: 065
  3. POMALYST [Suspect]
     Active Substance: POMALIDOMIDE
     Indication: PLASMA CELL MYELOMA
     Dosage: 4 MG
     Route: 048

REACTIONS (13)
  - Diarrhoea [Unknown]
  - Plasma cell myeloma [Unknown]
  - Infusion related reaction [Unknown]
  - Tremor [Unknown]
  - Neutropenic infection [Recovered/Resolved]
  - Confusional state [Unknown]
  - Upper respiratory tract infection [Unknown]
  - Dyspnoea [Unknown]
  - Intestinal perforation [Fatal]
  - Thrombocytopenia [Unknown]
  - Fatigue [Unknown]
  - Neutropenia [Recovered/Resolved]
  - Cough [Unknown]
